FAERS Safety Report 15896246 (Version 2)
Quarter: 2019Q3

REPORT INFORMATION
  Report Type: Report from Study
  Country: US (occurrence: US)
  Receive Date: 20190131
  Receipt Date: 20190815
  Transmission Date: 20191004
  Serious: Yes (Other)
  Sender: FDA-Public Use
  Company Number: US-BAUSCH-BL-2019-002774

PATIENT
  Age: 55 Year
  Sex: Male

DRUGS (2)
  1. SILIQ [Suspect]
     Active Substance: BRODALUMAB
     Dosage: AT WEEKS 0,1 AND 2 FOLLOWED BY 210 MG EVERY 2 WEEKS (210 MG/1.5 ML SOSY)
     Route: 058
     Dates: end: 201907
  2. SILIQ [Suspect]
     Active Substance: BRODALUMAB
     Indication: PSORIASIS
     Dosage: AT WEEKS 0,1 AND 2 FOLLOWED BY 210 MG EVERY 2 WEEKS (210 MG/1.5 ML SOSY)
     Route: 058

REACTIONS (3)
  - Therapy cessation [Unknown]
  - Fall [Unknown]
  - Pelvic fracture [Unknown]

NARRATIVE: CASE EVENT DATE: 201907
